FAERS Safety Report 13540977 (Version 2)
Quarter: 2017Q3

REPORT INFORMATION
  Report Type: Report from Study
  Country: US (occurrence: US)
  Receive Date: 20170512
  Receipt Date: 20170810
  Transmission Date: 20171127
  Serious: Yes (Death, Hospitalization, Other)
  Sender: FDA-Public Use
  Company Number: US-BAYER-2016-234824

PATIENT
  Age: 32 Year
  Sex: Male
  Weight: 136.5 kg

DRUGS (6)
  1. ADEMPAS [Suspect]
     Active Substance: RIOCIGUAT
     Indication: PULMONARY ARTERIAL HYPERTENSION
     Dosage: UNK
     Dates: start: 20151231, end: 20170508
  2. ADEMPAS [Suspect]
     Active Substance: RIOCIGUAT
     Indication: PULMONARY ARTERIAL HYPERTENSION
     Dosage: 2.5 MG, TID
     Route: 048
  3. ADEMPAS [Suspect]
     Active Substance: RIOCIGUAT
     Indication: PULMONARY ARTERIAL HYPERTENSION
     Dosage: 2.5 MG, TID
  4. ADEMPAS [Suspect]
     Active Substance: RIOCIGUAT
     Indication: PULMONARY HYPERTENSION
     Dosage: 1 MG, TID
     Route: 048
  5. ADEMPAS [Suspect]
     Active Substance: RIOCIGUAT
     Indication: PULMONARY ARTERIAL HYPERTENSION
     Dosage: 2.5 MG, TID
     Route: 048
  6. REMODULIN [Concomitant]
     Active Substance: TREPROSTINIL
     Dosage: UNK

REACTIONS (14)
  - Hospitalisation [Unknown]
  - Acute kidney injury [None]
  - Hyponatraemia [None]
  - Peritonitis [None]
  - Syncope [Unknown]
  - Pulmonary hypertension [Unknown]
  - Septic shock [Fatal]
  - Pancreatitis [Unknown]
  - End stage renal disease [None]
  - Endocarditis [None]
  - Right ventricular failure [Fatal]
  - Dyspnoea [Unknown]
  - Intracardiac thrombus [Unknown]
  - Fluid overload [Unknown]

NARRATIVE: CASE EVENT DATE: 20161207
